FAERS Safety Report 5756692-8 (Version None)
Quarter: 2008Q2

REPORT INFORMATION
  Report Type: 
  Country: None (occurrence: None)
  Receive Date: 20080529
  Receipt Date: 20080520
  Transmission Date: 20081010
  Serious: Yes (Other)
  Sender: FDA-Public Use
  Company Number: 2008US001418

PATIENT

DRUGS (2)
  1. PROGRAF [Suspect]
     Indication: DRUG EXPOSURE DURING PREGNANCY
  2. MYCOPHENOLATE MOFETIL [Suspect]
     Indication: DRUG EXPOSURE DURING PREGNANCY

REACTIONS (3)
  - DRUG EXPOSURE DURING PREGNANCY [None]
  - DUODENAL ATRESIA [None]
  - FALLOT'S TETRALOGY [None]
